FAERS Safety Report 16869284 (Version 3)
Quarter: 2019Q4

REPORT INFORMATION
  Report Type: Report from Study
  Country: KR (occurrence: KR)
  Receive Date: 20190930
  Receipt Date: 20191101
  Transmission Date: 20200122
  Serious: Yes (Hospitalization, Other)
  Sender: FDA-Public Use
  Company Number: PHHY2019KR225596

PATIENT
  Age: 19 Year
  Sex: Male
  Weight: 69 kg

DRUGS (2)
  1. COSENTYX [Suspect]
     Active Substance: SECUKINUMAB
     Dosage: 300 MG
     Route: 058
     Dates: start: 20190909
  2. COSENTYX [Suspect]
     Active Substance: SECUKINUMAB
     Indication: CELLULITIS
     Dosage: 300 MG
     Route: 058
     Dates: start: 20190516

REACTIONS (5)
  - Neisseria infection [Recovered/Resolved]
  - Staphylococcal skin infection [Recovered/Resolved]
  - Dermatitis psoriasiform [Unknown]
  - Eczema [Unknown]
  - Product use in unapproved indication [Unknown]

NARRATIVE: CASE EVENT DATE: 20190917
